FAERS Safety Report 23440263 (Version 3)
Quarter: 2024Q1

REPORT INFORMATION
  Report Type: Spontaneous
  Country: KR (occurrence: KR)
  Receive Date: 20240124
  Receipt Date: 20240305
  Transmission Date: 20240410
  Serious: Yes (Hospitalization, Other)
  Sender: FDA-Public Use
  Company Number: KR-BRISTOL-MYERS SQUIBB COMPANY-2024-010602

PATIENT

DRUGS (8)
  1. INREBIC [Suspect]
     Active Substance: FEDRATINIB HYDROCHLORIDE
     Indication: Product used for unknown indication
     Route: 048
     Dates: start: 20230712
  2. INREBIC [Suspect]
     Active Substance: FEDRATINIB HYDROCHLORIDE
     Route: 048
     Dates: start: 20230816, end: 20230917
  3. FEDULOW [Concomitant]
     Indication: Haemosiderosis
     Dosage: ONGOING
     Route: 048
     Dates: start: 20230317
  4. COMBISOPT [Concomitant]
     Indication: Glaucoma
     Route: 047
     Dates: start: 20171031, end: 20231119
  5. BRIDINE T [Concomitant]
     Indication: Glaucoma
     Dosage: ONGOING
     Route: 047
     Dates: start: 20230526
  6. GASTER [Concomitant]
     Active Substance: FAMOTIDINE
     Indication: Gastrooesophageal reflux disease
     Dosage: ONGOING
     Route: 048
     Dates: start: 20230816
  7. MEGESTROL [Concomitant]
     Active Substance: MEGESTROL
     Indication: Decreased appetite
     Dosage: ONGOING
     Route: 048
     Dates: start: 20230816
  8. HERBALS [Concomitant]
     Active Substance: HERBALS
     Indication: Prophylaxis
     Dosage: ONGOING
     Route: 048
     Dates: start: 20230816

REACTIONS (15)
  - Pulmonary embolism [Recovering/Resolving]
  - Rash [Unknown]
  - Erythema [Unknown]
  - Vomiting [Unknown]
  - Pneumonia [Recovering/Resolving]
  - Nausea [Unknown]
  - Urticaria [Unknown]
  - Constipation [Unknown]
  - Hypoalbuminaemia [Unknown]
  - Hypophagia [Unknown]
  - Hyperkalaemia [Unknown]
  - Intraocular pressure decreased [Unknown]
  - Hepatitis [Unknown]
  - Pain [Unknown]
  - Chest pain [Unknown]

NARRATIVE: CASE EVENT DATE: 20230701
